FAERS Safety Report 5945057-1 (Version None)
Quarter: 2008Q4

REPORT INFORMATION
  Report Type: 
  Country: None (occurrence: None)
  Receive Date: 20081107
  Receipt Date: 20081031
  Transmission Date: 20090506
  Serious: Yes (Other)
  Sender: FDA-Public Use
  Company Number: GB-TEVA-179864ISR

PATIENT
  Sex: Female

DRUGS (5)
  1. CARBAMAZEPINE [Suspect]
  2. LAMOTRIGINE [Suspect]
  3. ACETAZOLAMIDE [Suspect]
  4. ACETYLSALICYLIC ACID SRT [Suspect]
     Indication: THROMBOCYTHAEMIA
  5. HEPARIN [Suspect]

REACTIONS (1)
  - POSTPARTUM HAEMORRHAGE [None]
